FAERS Safety Report 6661509-3 (Version None)
Quarter: 2010Q1

REPORT INFORMATION
  Report Type: 
  Country: None (occurrence: None)
  Receive Date: 20100331
  Receipt Date: 20100325
  Transmission Date: 20100710
  Serious: Yes (Hospitalization, Other)
  Sender: FDA-Public Use
  Company Number: CA-ROXANE LABORATORIES, INC.-2010-RO-00345RO

PATIENT
  Age: 52 Year
  Sex: Male
  Weight: 60 kg

DRUGS (3)
  1. LITHIUM CARBONATE [Suspect]
     Indication: BIPOLAR DISORDER
     Dosage: 1200 MG
  2. SODIUM POLYSTYRENE SULFONATE [Suspect]
     Indication: THERAPEUTIC AGENT TOXICITY
  3. NORMAL SALINE [Concomitant]
     Indication: THERAPEUTIC AGENT TOXICITY

REACTIONS (2)
  - HYPOKALAEMIA [None]
  - THERAPEUTIC AGENT TOXICITY [None]
